FAERS Safety Report 9105792 (Version 2)
Quarter: 2013Q2

REPORT INFORMATION
  Report Type: Spontaneous
  Country: JP (occurrence: JP)
  Receive Date: 20130221
  Receipt Date: 20130501
  Transmission Date: 20140414
  Serious: Yes (Other)
  Sender: FDA-Public Use
  Company Number: JP-GLAXOSMITHKLINE-B0868261A

PATIENT
  Age: 41 Year
  Sex: Female

DRUGS (1)
  1. TOPOTECAN HYDROCHLORIDE [Suspect]
     Indication: OVARIAN CANCER RECURRENT
     Dosage: 1.25MGM2 PER DAY
     Route: 042
     Dates: start: 20121105, end: 20121130

REACTIONS (15)
  - Ileus [Not Recovered/Not Resolved]
  - Nausea [Not Recovered/Not Resolved]
  - Decreased appetite [Not Recovered/Not Resolved]
  - White blood cell count decreased [Not Recovered/Not Resolved]
  - Neutrophil count decreased [Recovering/Resolving]
  - Platelet count decreased [Recovered/Resolved]
  - Abdominal pain upper [Not Recovered/Not Resolved]
  - Constipation [Not Recovered/Not Resolved]
  - Aspartate aminotransferase increased [Not Recovered/Not Resolved]
  - Alanine aminotransferase increased [Not Recovered/Not Resolved]
  - Hypoalbuminaemia [Not Recovered/Not Resolved]
  - Red blood cell count decreased [Not Recovered/Not Resolved]
  - Anaemia [Not Recovered/Not Resolved]
  - Blood bilirubin increased [Not Recovered/Not Resolved]
  - Hyponatraemia [Not Recovered/Not Resolved]
